FAERS Safety Report 4580213-9 (Version None)
Quarter: 2005Q1

REPORT INFORMATION
  Report Type: 
  Country: None (occurrence: None)
  Receive Date: 20050127
  Receipt Date: 20040907
  Transmission Date: 20050727
  Serious: No
  Sender: FDA-Public Use
  Company Number: USA030742124

PATIENT
  Age: 38 Year
  Sex: Female

DRUGS (2)
  1. STRATTERA [Suspect]
     Indication: ATTENTION DEFICIT/HYPERACTIVITY DISORDER
     Dosage: 60 MG/DAY
     Dates: start: 20030201
  2. EFFEXOR (VENLAFAXAINE HYDROCHLORIDE) [Concomitant]

REACTIONS (1)
  - ABORTION SPONTANEOUS [None]
